FAERS Safety Report 13940716 (Version 2)
Quarter: 2018Q4

REPORT INFORMATION
  Report Type: Report from Study
  Country: US (occurrence: US)
  Receive Date: 20170906
  Receipt Date: 20181004
  Transmission Date: 20190204
  Serious: Yes (Hospitalization, Other)
  Sender: FDA-Public Use
  Company Number: US-ARIAD PHARMACEUTICALS, INC-2017US008822

PATIENT
  Age: 73 Year
  Sex: Female

DRUGS (2)
  1. PONATINIB [Suspect]
     Active Substance: PONATINIB
     Indication: CHRONIC MYELOID LEUKAEMIA
     Dosage: 15 MG, QD
     Route: 048
     Dates: start: 201403
  2. PONATINIB [Suspect]
     Active Substance: PONATINIB
     Dosage: 15 MG, QD
     Route: 048
     Dates: start: 201708

REACTIONS (5)
  - Cerebrovascular accident [Unknown]
  - Blood glucose increased [Unknown]
  - Peripheral artery bypass [Unknown]
  - Gangrene [Unknown]
  - Headache [Unknown]

NARRATIVE: CASE EVENT DATE: 20160901
